FAERS Safety Report 23871684 (Version 1)
Quarter: 2024Q2

REPORT INFORMATION
  Report Type: Spontaneous
  Country: US (occurrence: US)
  Receive Date: 20240519
  Receipt Date: 20240519
  Transmission Date: 20240716
  Serious: No
  Sender: FDA-Public Use
  Company Number: US-TARSUS PHARMACEUTICALS-TSP-US-2024-000154

PATIENT
  Sex: Male

DRUGS (2)
  1. XDEMVY [Suspect]
     Active Substance: LOTILANER
     Indication: Blepharitis
     Dosage: UNK
     Route: 047
     Dates: start: 2023
  2. XDEMVY [Suspect]
     Active Substance: LOTILANER
     Dosage: UNK
     Route: 047
     Dates: start: 2024

REACTIONS (4)
  - Product use issue [Unknown]
  - Therapeutic response decreased [Unknown]
  - Blepharitis [Not Recovered/Not Resolved]
  - Disease recurrence [Not Recovered/Not Resolved]
